FAERS Safety Report 10524322 (Version 1)
Quarter: 2014Q4

REPORT INFORMATION
  Report Type: Spontaneous
  Country: FR (occurrence: FR)
  Receive Date: 20141017
  Receipt Date: 20141017
  Transmission Date: 20150528
  Serious: Yes (Hospitalization)
  Sender: FDA-Public Use
  Company Number: FR-NOVOPROD-425141

PATIENT
  Age: 14 Year
  Sex: Female
  Weight: 54 kg

DRUGS (4)
  1. NORDITROPIN [Suspect]
     Active Substance: SOMATROPIN
     Indication: TURNER^S SYNDROME
     Dosage: 1.5 MG, QD
     Route: 058
     Dates: start: 20120529
  2. NORDITROPIN [Suspect]
     Active Substance: SOMATROPIN
     Dosage: 1 MG, QD (FOR 15 DAYS)
     Route: 058
  3. NORDITROPIN [Suspect]
     Active Substance: SOMATROPIN
     Dosage: 1.2 MG, QD
     Route: 058
     Dates: end: 20120918
  4. NORDITROPIN [Suspect]
     Active Substance: SOMATROPIN
     Dosage: 0.8 MG, QD
     Route: 058
     Dates: start: 201212, end: 20130313

REACTIONS (5)
  - Asthenia [Recovered/Resolved]
  - Headache [Recovered/Resolved]
  - Vision blurred [Unknown]
  - Generalised oedema [Recovered/Resolved]
  - Somnolence [Unknown]

NARRATIVE: CASE EVENT DATE: 20120802
